FAERS Safety Report 9928867 (Version 2)
Quarter: 2014Q2

REPORT INFORMATION
  Report Type: Spontaneous
  Country: DE (occurrence: DE)
  Receive Date: 20140227
  Receipt Date: 20140404
  Transmission Date: 20141212
  Serious: Yes (Death)
  Sender: FDA-Public Use
  Company Number: DE-ROCHE-1356631

PATIENT
  Age: 63 Year
  Sex: Female

DRUGS (8)
  1. RITUXIMAB [Suspect]
     Indication: CHRONIC LYMPHOCYTIC LEUKAEMIA
     Dosage: FIVE CYCLES, 375-500MG/M2
     Route: 065
     Dates: start: 200809, end: 200907
  2. RITUXIMAB [Suspect]
     Dosage: THREE CYCLES
     Route: 065
  3. RITUXIMAB [Suspect]
     Route: 065
     Dates: start: 201203, end: 201204
  4. RITUXIMAB [Suspect]
     Route: 065
  5. BENDAMUSTINE [Suspect]
     Indication: CHRONIC LYMPHOCYTIC LEUKAEMIA
     Dosage: FIVE CYCLES
     Route: 065
     Dates: start: 200809, end: 200907
  6. BENDAMUSTINE [Suspect]
     Route: 065
     Dates: start: 201203, end: 201204
  7. VINCRISTIN [Suspect]
     Indication: CHRONIC LYMPHOCYTIC LEUKAEMIA
     Dosage: FIVE CYCLES
     Route: 065
     Dates: start: 200809, end: 200907
  8. PREDNISOLONE [Suspect]
     Indication: CHRONIC LYMPHOCYTIC LEUKAEMIA
     Route: 065
     Dates: start: 201203, end: 201204

REACTIONS (1)
  - Progressive multifocal leukoencephalopathy [Fatal]
